FAERS Safety Report 21017394 (Version 2)
Quarter: 2022Q2

REPORT INFORMATION
  Report Type: Spontaneous
  Country: GB (occurrence: None)
  Receive Date: 20220628
  Receipt Date: 20220629
  Transmission Date: 20220721
  Serious: Yes (Other)
  Sender: FDA-Public Use
  Company Number: GB-ROCHE-3118995

PATIENT
  Sex: Male

DRUGS (1)
  1. OCREVUS [Suspect]
     Active Substance: OCRELIZUMAB
     Indication: Relapsing multiple sclerosis
     Dosage: 2/3RDS OF A 600MG DOSE
     Route: 065

REACTIONS (3)
  - Anaphylactic shock [Unknown]
  - Chest pain [Unknown]
  - Chest discomfort [Unknown]
